FAERS Safety Report 22091450 (Version 1)
Quarter: 2023Q1

REPORT INFORMATION
  Report Type: Report from Study
  Country: US (occurrence: US)
  Receive Date: 20230314
  Receipt Date: 20230314
  Transmission Date: 20230418
  Serious: Yes (Hospitalization, Other)
  Sender: FDA-Public Use
  Company Number: US-BoehringerIngelheim-2022-BI-171114

PATIENT
  Age: 78 Year
  Sex: Female

DRUGS (1)
  1. OFEV [Suspect]
     Active Substance: NINTEDANIB
     Indication: Idiopathic pulmonary fibrosis
     Route: 048
     Dates: start: 20220502

REACTIONS (18)
  - Gastric haemorrhage [Unknown]
  - Urinary tract infection [Unknown]
  - Fatigue [Not Recovered/Not Resolved]
  - Bronchitis [Recovering/Resolving]
  - Abdominal discomfort [Not Recovered/Not Resolved]
  - Abdominal pain upper [Not Recovered/Not Resolved]
  - Fall [Unknown]
  - Upper limb fracture [Unknown]
  - Oesophageal dilation procedure [Unknown]
  - Diarrhoea [Recovering/Resolving]
  - Herpes zoster [Unknown]
  - Abdominal distension [Unknown]
  - Flatulence [Unknown]
  - Foreign body in throat [Unknown]
  - Cough [Unknown]
  - Diarrhoea [Recovered/Resolved]
  - Abdominal tenderness [Unknown]
  - Decreased appetite [Unknown]

NARRATIVE: CASE EVENT DATE: 20220601
